FAERS Safety Report 21408426 (Version 1)
Quarter: 2022Q4

REPORT INFORMATION
  Report Type: Spontaneous
  Country: US (occurrence: US)
  Receive Date: 20221004
  Receipt Date: 20221004
  Transmission Date: 20230112
  Serious: Yes (Other)
  Sender: FDA-Public Use
  Company Number: US-CMP PHARMA-2022CMP00024

PATIENT
  Age: 35 Year
  Sex: Female

DRUGS (3)
  1. TRIAMCINOLONE [Suspect]
     Active Substance: TRIAMCINOLONE
     Indication: Maculopathy
     Dosage: 4 MG, ONCE
  2. TRIAMCINOLONE [Suspect]
     Active Substance: TRIAMCINOLONE
     Indication: Retinal neovascularisation
     Dosage: 4 MG, ONCE
  3. TRIAMCINOLONE [Suspect]
     Active Substance: TRIAMCINOLONE
     Dosage: 4 MG EVERY 3-4 MONTHS

REACTIONS (2)
  - Cataract [Recovered/Resolved]
  - Glaucoma [Recovered/Resolved]
